FAERS Safety Report 9349010 (Version 1)
Quarter: 2013Q2

REPORT INFORMATION
  Report Type: Spontaneous
  Country: CY (occurrence: CY)
  Receive Date: 20130614
  Receipt Date: 20130614
  Transmission Date: 20140414
  Serious: Yes (Other)
  Sender: FDA-Public Use
  Company Number: CY-ROCHE-1236602

PATIENT
  Age: 56 Year
  Sex: Male

DRUGS (2)
  1. XOLAIR [Suspect]
     Indication: ASTHMA
     Route: 058
     Dates: start: 20110524
  2. SYMBICORT [Concomitant]

REACTIONS (1)
  - Acute myocardial infarction [Recovered/Resolved]
